FAERS Safety Report 25487415 (Version 1)
Quarter: 2025Q2

REPORT INFORMATION
  Report Type: Spontaneous
  Country: US (occurrence: US)
  Receive Date: 20250627
  Receipt Date: 20250627
  Transmission Date: 20250717
  Serious: Yes (Hospitalization)
  Sender: RIGEL PHARMACEUTICALS
  Company Number: US-RIGEL PHARMACEUTICALS, INC-20250600129

PATIENT
  Sex: Female

DRUGS (1)
  1. GAVRETO [Suspect]
     Active Substance: PRALSETINIB
     Indication: Lung neoplasm malignant
     Dosage: 300 MG, QD
     Route: 048
     Dates: start: 20250430

REACTIONS (5)
  - Hypotension [Unknown]
  - Blood potassium decreased [Unknown]
  - Blood magnesium decreased [Unknown]
  - Blood calcium decreased [Unknown]
  - Product prescribing issue [Unknown]

NARRATIVE: CASE EVENT DATE: 20250101
